FAERS Safety Report 15883459 (Version 1)
Quarter: 2019Q1

REPORT INFORMATION
  Report Type: Report from Study
  Country: GB (occurrence: GB)
  Receive Date: 20190129
  Receipt Date: 20190129
  Transmission Date: 20190417
  Serious: Yes (Hospitalization)
  Sender: FDA-Public Use
  Company Number: GB-ROCHE-2249564

PATIENT
  Age: 64 Year
  Sex: Female

DRUGS (12)
  1. DOCETAXEL. [Suspect]
     Active Substance: DOCETAXEL
     Dosage: CYCLE 1
     Route: 042
     Dates: start: 20160615, end: 20160615
  2. PERTUZUMAB. [Suspect]
     Active Substance: PERTUZUMAB
     Dosage: CYCLE 5
     Route: 042
     Dates: start: 20161026
  3. TRASTUZUMAB. [Suspect]
     Active Substance: TRASTUZUMAB
     Dosage: CYCLE 5
     Route: 042
     Dates: start: 20160615, end: 20160914
  4. PERTUZUMAB. [Suspect]
     Active Substance: PERTUZUMAB
     Indication: BREAST CANCER
     Dosage: CYCLE 1
     Route: 042
     Dates: start: 20160523, end: 20160523
  5. TRASTUZUMAB. [Suspect]
     Active Substance: TRASTUZUMAB
     Route: 042
     Dates: start: 20161116
  6. DOCETAXEL. [Suspect]
     Active Substance: DOCETAXEL
     Dosage: CYCLE 7
     Route: 042
     Dates: start: 20160706, end: 20161026
  7. ADCAL D3 [Concomitant]
     Active Substance: CALCIUM CARBONATE\CHOLECALCIFEROL
     Route: 048
     Dates: start: 20170117
  8. DENOSUMAB [Concomitant]
     Active Substance: DENOSUMAB
     Indication: METASTASES TO BONE
     Route: 042
     Dates: start: 20161012
  9. PERTUZUMAB. [Suspect]
     Active Substance: PERTUZUMAB
     Route: 042
     Dates: start: 20160615, end: 20160914
  10. TRASTUZUMAB. [Suspect]
     Active Substance: TRASTUZUMAB
     Indication: BREAST CANCER
     Dosage: CYCLE 1
     Route: 042
     Dates: start: 20160524, end: 20160524
  11. TRASTUZUMAB. [Suspect]
     Active Substance: TRASTUZUMAB
     Dosage: CYCLE 1
     Route: 042
     Dates: start: 20161026, end: 20161026
  12. DOCETAXEL. [Suspect]
     Active Substance: DOCETAXEL
     Indication: BREAST CANCER
     Dosage: CYCLE 1
     Route: 042
     Dates: start: 20160524, end: 20160524

REACTIONS (1)
  - Sepsis [Recovered/Resolved]

NARRATIVE: CASE EVENT DATE: 20181127
